FAERS Safety Report 13157670 (Version 1)
Quarter: 2017Q1

REPORT INFORMATION
  Report Type: Spontaneous
  Country: US (occurrence: US)
  Receive Date: 20170127
  Receipt Date: 20170127
  Transmission Date: 20170428
  Serious: No
  Sender: FDA-Public Use
  Company Number: US-JNJFOC-20161223543

PATIENT
  Age: 74 Year
  Sex: Female
  Weight: 77.11 kg

DRUGS (1)
  1. SIMPONI [Suspect]
     Active Substance: GOLIMUMAB
     Indication: RHEUMATOID ARTHRITIS
     Route: 058
     Dates: start: 2015

REACTIONS (6)
  - Malaise [Unknown]
  - Accidental exposure to product [Unknown]
  - Drug dose omission [Unknown]
  - Off label use [Unknown]
  - Product use issue [Unknown]
  - Device malfunction [Unknown]

NARRATIVE: CASE EVENT DATE: 2015
